FAERS Safety Report 16778730 (Version 1)
Quarter: 2019Q3

REPORT INFORMATION
  Report Type: Spontaneous
  Country: TH (occurrence: TH)
  Receive Date: 20190906
  Receipt Date: 20190906
  Transmission Date: 20191005
  Serious: Yes (Other)
  Sender: FDA-Public Use
  Company Number: TH-B.I. PHARMACEUTICALS,INC./RIDGEFIELD-2019-BI-100016

PATIENT
  Age: 38 Year
  Sex: Female

DRUGS (4)
  1. DOCETAXEL. [Concomitant]
     Active Substance: DOCETAXEL
     Indication: NON-SMALL CELL LUNG CANCER STAGE IV
     Dosage: UNIT DOSE: 75 /M2 MILLIGRAM
     Route: 065
     Dates: start: 20190325, end: 20190530
  2. VARGATEF [Suspect]
     Active Substance: NINTEDANIB
     Indication: NON-SMALL CELL LUNG CANCER STAGE IV
     Route: 065
     Dates: start: 20190415, end: 20190715
  3. DOCETAXEL. [Concomitant]
     Active Substance: DOCETAXEL
     Indication: ADENOCARCINOMA
  4. VARGATEF [Suspect]
     Active Substance: NINTEDANIB
     Indication: ADENOCARCINOMA

REACTIONS (3)
  - Non-small cell lung cancer [Unknown]
  - Diarrhoea [Unknown]
  - Neuropathy peripheral [Unknown]
